FAERS Safety Report 7013191-3 (Version None)
Quarter: 2010Q3

REPORT INFORMATION
  Report Type: 
  Country: None (occurrence: None)
  Receive Date: 20100924
  Receipt Date: 20100915
  Transmission Date: 20110219
  Serious: Yes (Other)
  Sender: FDA-Public Use
  Company Number: DE-JNJFOC-20100207430

PATIENT
  Sex: Male
  Weight: 62 kg

DRUGS (2)
  1. RISPERDAL [Suspect]
     Indication: PSYCHOTIC DISORDER
     Route: 048
  2. RISPERDAL [Suspect]
     Route: 048

REACTIONS (8)
  - AGGRESSION [None]
  - AKATHISIA [None]
  - BLOOD PRESSURE FLUCTUATION [None]
  - COLD SWEAT [None]
  - FEAR [None]
  - HEART RATE INCREASED [None]
  - MUSCULOSKELETAL STIFFNESS [None]
  - URINARY INCONTINENCE [None]
